FAERS Safety Report 6793806-5 (Version None)
Quarter: 2010Q2

REPORT INFORMATION
  Report Type: 
  Country: None (occurrence: None)
  Receive Date: 20100624
  Receipt Date: 20090604
  Transmission Date: 20101027
  Serious: Yes (Other)
  Sender: FDA-Public Use
  Company Number: US-PFIZER INC-2009151003

PATIENT
  Age: 32 Year
  Sex: Female
  Weight: 47.619 kg

DRUGS (5)
  1. GEODON [Interacting]
     Indication: SCHIZOAFFECTIVE DISORDER
     Dosage: UNK
     Dates: start: 20080101
  2. GEODON [Interacting]
     Indication: BIPOLAR I DISORDER
  3. LITHIUM CARBONATE [Interacting]
     Indication: SCHIZOAFFECTIVE DISORDER
     Dosage: UNK
     Dates: start: 20080101
  4. LITHIUM CARBONATE [Interacting]
     Indication: BIPOLAR I DISORDER
  5. RITALIN [Suspect]
     Indication: DISTURBANCE IN ATTENTION
     Dosage: UNK
     Dates: start: 20081201

REACTIONS (4)
  - DISTURBANCE IN ATTENTION [None]
  - DRUG INTERACTION [None]
  - PARANOIA [None]
  - TREMOR [None]
